FAERS Safety Report 16957162 (Version 8)
Quarter: 2022Q3

REPORT INFORMATION
  Report Type: Report from Study
  Country: CN (occurrence: None)
  Receive Date: 20191024
  Receipt Date: 20220714
  Transmission Date: 20221027
  Serious: Yes (Life-Threatening, Hospitalization, Other)
  Sender: FDA-Public Use
  Company Number: CN-ROCHE-2251170

PATIENT
  Age: 55 Year
  Sex: Female
  Weight: 55 kg

DRUGS (69)
  1. BEVACIZUMAB [Suspect]
     Active Substance: BEVACIZUMAB
     Indication: Ovarian cancer
     Dosage: DATE OF MOST RECENT DOSE PRIOR TO ONSET OF THE EVENT: 20/JAN/2019 (760 MG)?ON 01/SEP/2019, MOST RECE
     Route: 042
     Dates: start: 20181015
  2. BEVACIZUMAB [Suspect]
     Active Substance: BEVACIZUMAB
     Dosage: MOST RECENT DOSE ON 14/NOV/2019 (760 MG)
     Route: 042
     Dates: start: 20181015
  3. PACLITAXEL [Suspect]
     Active Substance: PACLITAXEL
     Indication: Ovarian cancer
     Dosage: DATE OF MOST RECENT DOSE PRIOR TO ONSET OF THE EVENT: 20/JAN/2019 (250 MG)?DATE OF MOST RECENT DOSE
     Route: 042
     Dates: start: 20180921
  4. CARBOPLATIN [Suspect]
     Active Substance: CARBOPLATIN
     Indication: Ovarian cancer
     Dosage: DATE OF MOST RECENT DOSE PRIOR TO ONSET OF THE EVENT: 20/JAN/2019 (470 MG)?DATE OF MOST RECENT DOSE
     Route: 042
     Dates: start: 20180921
  5. PLACEBO [Suspect]
     Active Substance: UNSPECIFIED INGREDIENT
     Indication: Ovarian cancer
     Dosage: MOST RECENT DOSE ON 14/NOV/2019
     Route: 042
     Dates: start: 20180921
  6. DEXAMETHASONE SODIUM PHOSPHATE [Concomitant]
     Active Substance: DEXAMETHASONE SODIUM PHOSPHATE
     Dosage: PREVENT ALLERGY
     Route: 042
     Dates: start: 20181226, end: 20181226
  7. DEXAMETHASONE SODIUM PHOSPHATE [Concomitant]
     Active Substance: DEXAMETHASONE SODIUM PHOSPHATE
     Dosage: PREVENT ALLERGY
     Route: 042
     Dates: start: 20190901, end: 20190901
  8. DEXAMETHASONE SODIUM PHOSPHATE [Concomitant]
     Active Substance: DEXAMETHASONE SODIUM PHOSPHATE
     Route: 042
     Dates: start: 20190926, end: 20190926
  9. DEXAMETHASONE SODIUM PHOSPHATE [Concomitant]
     Active Substance: DEXAMETHASONE SODIUM PHOSPHATE
     Route: 042
     Dates: start: 20190926, end: 20190926
  10. DEXAMETHASONE SODIUM PHOSPHATE [Concomitant]
     Active Substance: DEXAMETHASONE SODIUM PHOSPHATE
     Route: 042
     Dates: start: 20190928, end: 20190928
  11. DEXAMETHASONE SODIUM PHOSPHATE [Concomitant]
     Active Substance: DEXAMETHASONE SODIUM PHOSPHATE
     Route: 042
     Dates: start: 20190929, end: 20191001
  12. DEXAMETHASONE SODIUM PHOSPHATE [Concomitant]
     Active Substance: DEXAMETHASONE SODIUM PHOSPHATE
     Route: 042
     Dates: start: 20190929, end: 20191002
  13. DEXAMETHASONE SODIUM PHOSPHATE [Concomitant]
     Active Substance: DEXAMETHASONE SODIUM PHOSPHATE
     Route: 042
     Dates: start: 20191004, end: 20191004
  14. DEXAMETHASONE SODIUM PHOSPHATE [Concomitant]
     Active Substance: DEXAMETHASONE SODIUM PHOSPHATE
     Route: 042
     Dates: start: 20191006, end: 20191006
  15. DEXAMETHASONE SODIUM PHOSPHATE [Concomitant]
     Active Substance: DEXAMETHASONE SODIUM PHOSPHATE
     Route: 042
     Dates: start: 20191022, end: 20191022
  16. DEXAMETHASONE SODIUM PHOSPHATE [Concomitant]
     Active Substance: DEXAMETHASONE SODIUM PHOSPHATE
     Route: 042
     Dates: start: 20191114, end: 20191114
  17. DEXAMETHASONE SODIUM PHOSPHATE [Concomitant]
     Active Substance: DEXAMETHASONE SODIUM PHOSPHATE
     Route: 042
     Dates: start: 20190120, end: 20190120
  18. DEXAMETHASONE SODIUM PHOSPHATE [Concomitant]
     Active Substance: DEXAMETHASONE SODIUM PHOSPHATE
     Route: 042
     Dates: start: 20191205, end: 20191205
  19. FERRIC POLYSACCHARIDE COMPLEX [Concomitant]
     Active Substance: FERRIC POLYSACCHARIDE COMPLEX
     Indication: Anaemia
     Dates: start: 20181121
  20. DEXAMETHASONE ACETATE [Concomitant]
     Active Substance: DEXAMETHASONE ACETATE
     Indication: Platelet count increased
     Route: 048
     Dates: start: 20181225, end: 20181225
  21. DEXAMETHASONE ACETATE [Concomitant]
     Active Substance: DEXAMETHASONE ACETATE
     Route: 048
     Dates: start: 20190119, end: 20190119
  22. LORATADINE [Concomitant]
     Active Substance: LORATADINE
     Dosage: PREVENT ALLERGY
     Dates: start: 20181226, end: 20181226
  23. LORATADINE [Concomitant]
     Active Substance: LORATADINE
     Dates: start: 20190901, end: 20190901
  24. LORATADINE [Concomitant]
     Active Substance: LORATADINE
     Dates: start: 20190926, end: 20190926
  25. LORATADINE [Concomitant]
     Active Substance: LORATADINE
     Dates: start: 20190928, end: 20190928
  26. LORATADINE [Concomitant]
     Active Substance: LORATADINE
     Dates: start: 20191022, end: 20191022
  27. LORATADINE [Concomitant]
     Active Substance: LORATADINE
     Dates: start: 20191114, end: 20191114
  28. CIMETIDINE [Concomitant]
     Active Substance: CIMETIDINE
     Dosage: PREVENT ALLERGY
     Dates: start: 20181226, end: 20181226
  29. CIMETIDINE [Concomitant]
     Active Substance: CIMETIDINE
     Dates: start: 20190901, end: 20190901
  30. CIMETIDINE [Concomitant]
     Active Substance: CIMETIDINE
     Dates: start: 20190926, end: 20190926
  31. CIMETIDINE [Concomitant]
     Active Substance: CIMETIDINE
     Dates: start: 20191022, end: 20191022
  32. CIMETIDINE [Concomitant]
     Active Substance: CIMETIDINE
     Dates: start: 20191114, end: 20191114
  33. PALONOSETRON [Concomitant]
     Active Substance: PALONOSETRON
     Indication: Vomiting
     Dates: start: 20181226, end: 20181226
  34. PALONOSETRON [Concomitant]
     Active Substance: PALONOSETRON
     Dates: start: 20190120, end: 20190120
  35. OMEPRAZOLE SODIUM [Concomitant]
     Active Substance: OMEPRAZOLE SODIUM
     Dosage: PROTECT GASTRIC MUCOSA
     Dates: start: 20181226, end: 20181226
  36. OMEPRAZOLE SODIUM [Concomitant]
     Active Substance: OMEPRAZOLE SODIUM
     Dates: start: 20190901, end: 20190901
  37. OMEPRAZOLE SODIUM [Concomitant]
     Active Substance: OMEPRAZOLE SODIUM
     Dates: start: 20191022, end: 20191024
  38. OMEPRAZOLE SODIUM [Concomitant]
     Active Substance: OMEPRAZOLE SODIUM
     Dates: start: 20191114, end: 20191114
  39. GLUTATHIONE REDUCED [Concomitant]
     Dates: start: 20181226, end: 20181229
  40. GLUTATHIONE REDUCED [Concomitant]
     Dosage: PROTECT LIVER
     Dates: start: 20190901, end: 20190901
  41. GLUTATHIONE REDUCED [Concomitant]
     Dates: start: 20190926, end: 20191004
  42. GLUTATHIONE REDUCED [Concomitant]
     Dates: start: 20191022, end: 20191024
  43. GLUTATHIONE REDUCED [Concomitant]
     Dates: start: 20191114, end: 20191114
  44. FUROSEMIDE [Concomitant]
     Active Substance: FUROSEMIDE
     Indication: Polyuria
     Dates: start: 20181226, end: 20181226
  45. BETAHISTINE [Concomitant]
     Active Substance: BETAHISTINE
     Indication: Dizziness
     Dates: start: 20181228, end: 20181228
  46. HYDROCHLOROTHIAZIDE\IRBESARTAN [Concomitant]
     Active Substance: HYDROCHLOROTHIAZIDE\IRBESARTAN
     Dates: start: 20190221
  47. OMEPRAZOLE SODIUM [Concomitant]
     Active Substance: OMEPRAZOLE SODIUM
     Dosage: PROTECT GASTRIC MUCOSA
     Dates: start: 20190926, end: 20190926
  48. PROMETHAZINE HYDROCHLORIDE [Concomitant]
     Active Substance: PROMETHAZINE HYDROCHLORIDE
     Dates: start: 20190926, end: 20190926
  49. PROMETHAZINE HYDROCHLORIDE [Concomitant]
     Active Substance: PROMETHAZINE HYDROCHLORIDE
     Dates: start: 20190928, end: 20190928
  50. PROMETHAZINE HYDROCHLORIDE [Concomitant]
     Active Substance: PROMETHAZINE HYDROCHLORIDE
     Dates: start: 20190929, end: 20190930
  51. PROMETHAZINE HYDROCHLORIDE [Concomitant]
     Active Substance: PROMETHAZINE HYDROCHLORIDE
     Route: 030
  52. MAGNESIUM ISOGLYCYRRHIZINATE [Concomitant]
     Active Substance: MAGNESIUM ISOGLYCYRRHIZINATE
     Dates: start: 20190927, end: 20191004
  53. OPRELVEKIN [Concomitant]
     Active Substance: OPRELVEKIN
     Indication: Platelet count increased
     Dates: start: 20190927, end: 20191010
  54. PLATELETS [Concomitant]
     Active Substance: HUMAN PLATELET, ALLOGENIC
     Indication: Platelet count increased
     Dates: start: 20190928, end: 20190928
  55. PLATELETS [Concomitant]
     Active Substance: HUMAN PLATELET, ALLOGENIC
     Dates: start: 20190929, end: 20191002
  56. PLATELETS [Concomitant]
     Active Substance: HUMAN PLATELET, ALLOGENIC
     Dosage: 20 UNITS
     Dates: start: 20191004, end: 20191004
  57. PLATELETS [Concomitant]
     Active Substance: HUMAN PLATELET, ALLOGENIC
     Dates: start: 20191006, end: 20191006
  58. HETASTARCH [Concomitant]
     Active Substance: HETASTARCH
     Indication: Hypovolaemia
     Dates: start: 20190928, end: 20190928
  59. SODIUM CHLORIDE [Concomitant]
     Active Substance: SODIUM CHLORIDE
     Dates: start: 20190928, end: 20190928
  60. THROMBOPOIETIN [Concomitant]
     Active Substance: THROMBOPOIETIN
     Indication: Platelet count increased
     Dates: start: 20190928, end: 20191010
  61. LACTULOSE [Concomitant]
     Active Substance: LACTULOSE
     Indication: Constipation
     Dates: start: 20190929, end: 20190929
  62. LACTULOSE [Concomitant]
     Active Substance: LACTULOSE
     Dates: start: 20191020, end: 20191023
  63. HUMAN IMMUNOGLOBULIN G [Concomitant]
     Active Substance: HUMAN IMMUNOGLOBULIN G
     Dates: start: 20191005, end: 20191005
  64. HUMAN-ALBUMIN [Concomitant]
     Indication: Hypoalbuminaemia
     Dates: start: 20191006, end: 20191006
  65. PHOSPHOLIPID [Concomitant]
     Active Substance: PHOSPHOLIPID
     Dates: start: 20191022, end: 20191024
  66. AMOXICILLIN\CLAVULANATE POTASSIUM [Concomitant]
     Active Substance: AMOXICILLIN\CLAVULANATE POTASSIUM
     Dates: start: 20191114, end: 20191114
  67. PIPERAZINE BISFERULATE [Concomitant]
     Active Substance: PIPERAZINE BISFERULATE
     Indication: Proteinuria
     Dates: start: 20191114, end: 20191114
  68. LIDOCAINE HYDROCHLORIDE [Concomitant]
     Active Substance: LIDOCAINE HYDROCHLORIDE
     Dates: start: 20191224, end: 20191224
  69. GLYCOSAMINOGLYCANS [Concomitant]
     Active Substance: GLYCOSAMINOGLYCANS
     Dates: start: 20200116, end: 20200116

REACTIONS (7)
  - Hypertension [Recovered/Resolved]
  - Anaphylactic shock [Recovered/Resolved]
  - Bacteraemia [Recovered/Resolved]
  - Haematuria [Recovered/Resolved]
  - Infusion related reaction [Recovered/Resolved]
  - Bacteraemia [Recovered/Resolved]
  - Hypertension [Recovered/Resolved]

NARRATIVE: CASE EVENT DATE: 20190122
